FAERS Safety Report 5583646-7 (Version None)
Quarter: 2007Q4

REPORT INFORMATION
  Report Type: 
  Country: None (occurrence: None)
  Receive Date: 20071231
  Receipt Date: 20071217
  Transmission Date: 20080405
  Serious: Yes (Hospitalization)
  Sender: FDA-Public Use
  Company Number: 2007-05843

PATIENT
  Age: 64 Year
  Sex: Female

DRUGS (3)
  1. FORTAMET [Suspect]
     Indication: TYPE 2 DIABETES MELLITUS
     Dosage: 500 MG, BID
     Dates: start: 20070101
  2. LISINOPRIL [Concomitant]
  3. IBUPROFEN [Concomitant]

REACTIONS (5)
  - HAEMODIALYSIS [None]
  - LACTIC ACIDOSIS [None]
  - METABOLIC ACIDOSIS [None]
  - RENAL IMPAIRMENT [None]
  - RENAL INJURY [None]
